FAERS Safety Report 18666517 (Version 1)
Quarter: 2020Q4

REPORT INFORMATION
  Report Type: Other
  Country: DE (occurrence: DE)
  Receive Date: 20201227
  Receipt Date: 20201227
  Transmission Date: 20210114
  Serious: Yes (Life-Threatening, Hospitalization, Other)
  Sender: FDA-Public Use
  Company Number: DE-DEXPHARM-20201179

PATIENT
  Age: 43 Year
  Sex: Male

DRUGS (3)
  1. OMEPRAZOLE. [Interacting]
     Active Substance: OMEPRAZOLE
  2. DOXEPIN [Interacting]
     Active Substance: DOXEPIN
  3. DIPYRONE [Suspect]
     Active Substance: DIPYRONE

REACTIONS (2)
  - Drug interaction [Unknown]
  - Agranulocytosis [Unknown]
